FAERS Safety Report 7820635-3 (Version None)
Quarter: 2011Q4

REPORT INFORMATION
  Report Type: 
  Country: None (occurrence: None)
  Receive Date: 20111012
  Receipt Date: 20110928
  Transmission Date: 20120403
  Serious: Yes (Hospitalization)
  Sender: FDA-Public Use
  Company Number: 2011232007

PATIENT
  Age: 69 Year
  Sex: Male

DRUGS (7)
  1. CYCLIZINE (CYCLIZINE) [Concomitant]
  2. DALTEPARIN SODIUM [Suspect]
     Indication: LUNG NEOPLASM MALIGNANT
  3. DIAZEPAM [Concomitant]
  4. ORAMORPH SR [Concomitant]
  5. LIDOCAINE [Concomitant]
  6. MORPHINE SULFATE [Concomitant]
  7. DEXAMETHASONE [Concomitant]

REACTIONS (6)
  - NEOPLASM PROGRESSION [None]
  - SOMNOLENCE [None]
  - LUNG NEOPLASM MALIGNANT [None]
  - TACHYCARDIA [None]
  - CONFUSIONAL STATE [None]
  - CEREBRAL INFARCTION [None]
